FAERS Safety Report 4634603-6 (Version None)
Quarter: 2005Q2

REPORT INFORMATION
  Report Type: 
  Country: None (occurrence: None)
  Receive Date: 20050413
  Receipt Date: 20050330
  Transmission Date: 20051028
  Serious: Yes (Hospitalization)
  Sender: FDA-Public Use
  Company Number: 2005052309

PATIENT
  Age: 19 Year
  Sex: Male

DRUGS (7)
  1. DIFLUCAN [Suspect]
     Indication: ORAL CANDIDIASIS
     Dosage: 300 MG (150 MG, 2 IN 1 D), ORAL
     Route: 048
     Dates: start: 20050310, end: 20050311
  2. CLAVULIN (AMOXCILLIN TRIHYDRATE, CLAVULANATE POTASSIUM) [Concomitant]
  3. ACETAMINOPHEN [Concomitant]
  4. NYSTATIN [Concomitant]
  5. METRONIDAZOLE (MITRONIDAZOLE) [Concomitant]
  6. NEUROBION FOR INJECTION (CYANOCOBALAMIN, PYRIDOXINE HYDROCHLORIDE, THI [Concomitant]
  7. MICONAZOLE NITRATE [Concomitant]

REACTIONS (4)
  - CONJUNCTIVAL HAEMORRHAGE [None]
  - PETECHIAE [None]
  - SKIN HAEMORRHAGE [None]
  - THROMBOCYTOPENIA [None]
